FAERS Safety Report 9481924 (Version 1)
Quarter: 2013Q3

REPORT INFORMATION
  Report Type: Spontaneous
  Country: US (occurrence: None)
  Receive Date: 20130823
  Receipt Date: 20130823
  Transmission Date: 20140515
  Serious: Yes (Other)
  Sender: FDA-Public Use
  Company Number: SYM-2013-09124

PATIENT
  Age: 79 Year
  Sex: Female
  Weight: 42.64 kg

DRUGS (1)
  1. XENAZINE (TETRABENAZINE) [Suspect]
     Indication: PRODUCT USED FOR UNKNOWN INDICATION
     Route: 048

REACTIONS (6)
  - Dysphagia [None]
  - Dizziness [None]
  - Visual impairment [None]
  - Loss of consciousness [None]
  - Gait disturbance [None]
  - Weight decreased [None]
